FAERS Safety Report 6369811-X (Version None)
Quarter: 2009Q3

REPORT INFORMATION
  Report Type: 
  Country: None (occurrence: None)
  Receive Date: 20090923
  Receipt Date: 20090915
  Transmission Date: 20100115
  Serious: Yes (Other)
  Sender: FDA-Public Use
  Company Number: US-TEVA-209613USA

PATIENT

DRUGS (1)
  1. METHYLPREDNISOLONE TABLET 4MG [Suspect]

REACTIONS (1)
  - SPINAL CORD INFARCTION [None]
